FAERS Safety Report 19708052 (Version 1)
Quarter: 2021Q3

REPORT INFORMATION
  Report Type: Spontaneous
  Country: US (occurrence: US)
  Receive Date: 20210817
  Receipt Date: 20210817
  Transmission Date: 20211014
  Serious: Yes (Hospitalization)
  Sender: FDA-Public Use
  Company Number: None

PATIENT
  Age: 56 Year
  Sex: Male
  Weight: 95.5 kg

DRUGS (8)
  1. ALTEPLASE. [Suspect]
     Active Substance: ALTEPLASE
     Indication: CEREBROVASCULAR ACCIDENT
     Dates: start: 20210709, end: 20210711
  2. ASPIRIN. [Concomitant]
     Active Substance: ASPIRIN
  3. ALPRAZOLAM. [Concomitant]
     Active Substance: ALPRAZOLAM
  4. BUPROPION. [Concomitant]
     Active Substance: BUPROPION
  5. LISINOPRIL/HYRDOCHLOROTHIAZIDE [Concomitant]
  6. ZOLPIDEM [Concomitant]
     Active Substance: ZOLPIDEM TARTRATE
  7. ROSUVASTATIN. [Concomitant]
     Active Substance: ROSUVASTATIN
  8. SOTOLOL [Concomitant]
     Active Substance: SOTALOL

REACTIONS (2)
  - Drug hypersensitivity [None]
  - Malaise [None]

NARRATIVE: CASE EVENT DATE: 20210709
